FAERS Safety Report 16884870 (Version 2)
Quarter: 2019Q4

REPORT INFORMATION
  Report Type: Spontaneous
  Country: US (occurrence: US)
  Receive Date: 20191004
  Receipt Date: 20191224
  Transmission Date: 20200122
  Serious: Yes (Hospitalization)
  Sender: FDA-Public Use
  Company Number: US-ROCHE-2419172

PATIENT
  Age: 42 Year
  Sex: Male
  Weight: 111.68 kg

DRUGS (7)
  1. CELLCEPT [Suspect]
     Active Substance: MYCOPHENOLATE MOFETIL\MYCOPHENOLATE MOFETIL HYDROCHLORIDE
     Route: 048
     Dates: start: 20190628
  2. PROGRAF [Concomitant]
     Active Substance: TACROLIMUS
     Indication: TRANSPLANT REJECTION
     Route: 048
     Dates: start: 20180130
  3. PROGRAF [Concomitant]
     Active Substance: TACROLIMUS
     Indication: LIVER TRANSPLANT
  4. CELLCEPT [Suspect]
     Active Substance: MYCOPHENOLATE MOFETIL\MYCOPHENOLATE MOFETIL HYDROCHLORIDE
     Indication: PRODUCT USED FOR UNKNOWN INDICATION
     Route: 048
     Dates: start: 20180130, end: 20190628
  5. TORSEMIDE. [Concomitant]
     Active Substance: TORSEMIDE
     Route: 048
     Dates: start: 201803, end: 20190214
  6. PROTONIX [Concomitant]
     Active Substance: PANTOPRAZOLE SODIUM
  7. LEXAPRO [Concomitant]
     Active Substance: ESCITALOPRAM OXALATE

REACTIONS (13)
  - Diaphragmatic paralysis [Unknown]
  - Acute respiratory failure [Unknown]
  - Anal abscess [Unknown]
  - Pneumonia klebsiella [Recovered/Resolved]
  - Asthenia [Unknown]
  - Weight increased [Unknown]
  - Deep vein thrombosis [Unknown]
  - Acute pulmonary oedema [Unknown]
  - Neuropathy peripheral [Unknown]
  - Restrictive pulmonary disease [Unknown]
  - Blood pressure increased [Unknown]
  - Pneumonia pseudomonal [Recovered/Resolved]
  - Weight decreased [Unknown]

NARRATIVE: CASE EVENT DATE: 201803
